FAERS Safety Report 4400096-7 (Version None)
Quarter: 2004Q3

REPORT INFORMATION
  Report Type: 
  Country: None (occurrence: None)
  Receive Date: 20040716
  Receipt Date: 20040624
  Transmission Date: 20050211
  Serious: Yes (Hospitalization)
  Sender: FDA-Public Use
  Company Number: FR_040504090

PATIENT
  Age: 79 Year
  Sex: Male

DRUGS (1)
  1. GEMZAR [Suspect]
     Indication: PANCREATIC CARCINOMA
     Dosage: 1200 MG WEEK
     Dates: start: 20040401

REACTIONS (3)
  - ENCEPHALOPATHY [None]
  - HYPOCALCAEMIA [None]
  - MYOCLONUS [None]
